FAERS Safety Report 10874465 (Version 1)
Quarter: 2015Q1

REPORT INFORMATION
  Report Type: Spontaneous
  Country: US (occurrence: US)
  Receive Date: 20150227
  Receipt Date: 20150227
  Transmission Date: 20150721
  Serious: No
  Sender: FDA-Public Use
  Company Number: US-GALDERMA-US14003115

PATIENT
  Age: 49 Year
  Sex: Male
  Weight: 79 kg

DRUGS (1)
  1. DESONIDE (DESONIDE) LOTION 0.05% [Suspect]
     Active Substance: DESONIDE
     Indication: DERMATITIS
     Dosage: 0.05%
     Route: 061
     Dates: start: 20140628, end: 201407

REACTIONS (3)
  - Skin irritation [Unknown]
  - Drug ineffective [Unknown]
  - Condition aggravated [Unknown]
